FAERS Safety Report 19950180 (Version 1)
Quarter: 2021Q4

REPORT INFORMATION
  Report Type: Spontaneous
  Country: ES (occurrence: ES)
  Receive Date: 20211013
  Receipt Date: 20211013
  Transmission Date: 20220303
  Serious: Yes (Other)
  Sender: FDA-Public Use
  Company Number: None

PATIENT
  Age: 45 Year
  Sex: Female

DRUGS (6)
  1. ACTIQ [Suspect]
     Active Substance: FENTANYL CITRATE
     Indication: Fibromyalgia
     Dosage: SUCKLING TABLETS WITH BUILT-IN ORAL APPLICATOR:UNIT DOSE:200MICROGRAM
     Route: 002
     Dates: start: 20200915, end: 202101
  2. QUDIX , 60 [Concomitant]
     Dosage: 100MILLIGRAM
     Route: 048
     Dates: start: 20180530
  3. LORMETAZEPAM NORMON, 20 [Concomitant]
     Dosage: 2MILLIGRAM
     Route: 048
     Dates: start: 2016
  4. DULOXETINA PENSA PHARMA(Blister PVC/PVDC-ALUMINIO) [Concomitant]
     Dosage: HARD GASTRO RESISTANT CAPSULES EFG:UNIT DOSE:120MILLIGRAM
     Route: 048
     Dates: start: 20170628
  5. DIAZEPAN PRODES ,30 [Concomitant]
     Dosage: 10MILLIGRAM
     Route: 048
     Dates: start: 20180226
  6. RIVOTRIL , 60 [Concomitant]
     Dosage: 2MILLIGRAM
     Route: 048
     Dates: start: 20130113

REACTIONS (3)
  - Drug dependence [Recovering/Resolving]
  - Inadequate analgesia [Recovering/Resolving]
  - Product administration error [Recovering/Resolving]

NARRATIVE: CASE EVENT DATE: 20201218
